FAERS Safety Report 8439146-X (Version None)
Quarter: 2012Q2

REPORT INFORMATION
  Report Type: 
  Country: None (occurrence: None)
  Receive Date: 20120615
  Receipt Date: 20120606
  Transmission Date: 20120825
  Serious: Yes (Hospitalization)
  Sender: FDA-Public Use
  Company Number: US-BRISTOL-MYERS SQUIBB COMPANY-13474184

PATIENT
  Age: 63 Year
  Sex: Female
  Weight: 71 kg

DRUGS (2)
  1. ERBITUX [Suspect]
     Indication: HEAD AND NECK CANCER
     Dosage: LAST DOSE:08AUG06
     Route: 042
     Dates: start: 20060710, end: 20060808
  2. TAXOTERE [Suspect]
     Indication: HEAD AND NECK CANCER
     Dosage: LAST DOSE:08AUG06
     Route: 042
     Dates: start: 20060710, end: 20060808

REACTIONS (1)
  - DIVERTICULITIS [None]
